FAERS Safety Report 6427064-8 (Version None)
Quarter: 2009Q4

REPORT INFORMATION
  Report Type: 
  Country: None (occurrence: None)
  Receive Date: 20091104
  Receipt Date: 20091029
  Transmission Date: 20100525
  Serious: Yes (Death, Life-Threatening, Hospitalization)
  Sender: FDA-Public Use
  Company Number: DE-BRISTOL-MYERS SQUIBB COMPANY-14784953

PATIENT
  Age: 60 Year
  Sex: Female
  Weight: 67 kg

DRUGS (5)
  1. ERBITUX [Suspect]
     Indication: RECTAL CANCER
     Dosage: RECENT INF:01SEP09
     Route: 042
     Dates: start: 20090818, end: 20090901
  2. DEGALIN [Suspect]
     Indication: RECTAL CANCER
     Dosage: RECENT INF:02SEP09
     Route: 042
     Dates: start: 20090825, end: 20090902
  3. OXALIPLATIN [Suspect]
     Indication: RECTAL CANCER
     Dosage: RECENT INF:02SEP09
     Route: 042
     Dates: start: 20090825, end: 20090902
  4. FLUOROURACIL [Suspect]
     Indication: RECTAL CANCER
     Dosage: RECENT INF:02SEP09
     Route: 042
     Dates: start: 20090825, end: 20090902
  5. SELENIUM [Concomitant]

REACTIONS (3)
  - ANAEMIA [None]
  - DISSEMINATED INTRAVASCULAR COAGULATION [None]
  - JAUNDICE [None]
